FAERS Safety Report 13237448 (Version 1)
Quarter: 2017Q1

REPORT INFORMATION
  Report Type: Spontaneous
  Country: US (occurrence: US)
  Receive Date: 20170214
  Receipt Date: 20170214
  Transmission Date: 20170428
  Serious: No
  Sender: FDA-Public Use
  Company Number: None

PATIENT
  Age: 41 Year
  Sex: Female

DRUGS (3)
  1. COPAXONE [Suspect]
     Active Substance: GLATIRAMER ACETATE
     Indication: MULTIPLE SCLEROSIS
  2. COPAXONE [Suspect]
     Active Substance: GLATIRAMER ACETATE
     Indication: TRIGEMINAL NERVE DISORDER
  3. COPAXONE [Suspect]
     Active Substance: GLATIRAMER ACETATE
     Indication: HYPERTENSION

REACTIONS (3)
  - Multiple sclerosis relapse [None]
  - Glucose tolerance impaired [None]
  - Trigeminal neuralgia [None]

NARRATIVE: CASE EVENT DATE: 20170214
